FAERS Safety Report 6110238-3 (Version None)
Quarter: 2009Q1

REPORT INFORMATION
  Report Type: 
  Country: None (occurrence: None)
  Receive Date: 20090310
  Receipt Date: 20090227
  Transmission Date: 20090719
  Serious: Yes (Death, Other)
  Sender: FDA-Public Use
  Company Number: US-AVENTIS-200910119US

PATIENT
  Sex: Male
  Weight: 117.21 kg

DRUGS (8)
  1. TAXOTERE [Suspect]
     Indication: PROSTATE CANCER METASTATIC
     Route: 042
     Dates: start: 20080207, end: 20081215
  2. TAXOTERE [Suspect]
     Dosage: DOSE: UNK
     Route: 042
     Dates: start: 20081215
  3. TAXOTERE [Suspect]
     Dosage: DOSE: UNK
     Route: 042
     Dates: start: 20081124
  4. TAXOTERE [Suspect]
     Dosage: DOSE: UNK
     Route: 042
     Dates: start: 20081124
  5. PREDNISONE [Concomitant]
     Dosage: DOSE: UNK
  6. DEXAMETHASONE [Concomitant]
     Dosage: DOSE: UNK
  7. ZOLEDRONIC ACID [Concomitant]
     Dosage: DOSE: UNK
  8. LASIX [Concomitant]

REACTIONS (9)
  - CARDIAC DISORDER [None]
  - CARDIAC FAILURE CONGESTIVE [None]
  - EJECTION FRACTION DECREASED [None]
  - HYPOTENSION [None]
  - OEDEMA PERIPHERAL [None]
  - OROPHARYNGEAL DISCOMFORT [None]
  - PRODUCTIVE COUGH [None]
  - RHINORRHOEA [None]
  - VENTRICULAR FIBRILLATION [None]
